FAERS Safety Report 4992804-1 (Version None)
Quarter: 2006Q2

REPORT INFORMATION
  Report Type: 
  Country: None (occurrence: None)
  Receive Date: 20060504
  Receipt Date: 20060425
  Transmission Date: 20061013
  Serious: Yes (Life-Threatening)
  Sender: FDA-Public Use
  Company Number: JP-MERCK-0604USA04274

PATIENT
  Age: 23 Year
  Sex: Male

DRUGS (6)
  1. COZAAR [Suspect]
     Route: 048
     Dates: start: 20060414, end: 20060401
  2. COZAAR [Suspect]
     Route: 065
     Dates: start: 20050101
  3. LASIX [Suspect]
     Route: 048
     Dates: start: 20050101, end: 20060401
  4. VANCOMYCIN [Suspect]
     Route: 041
     Dates: start: 20060401, end: 20060401
  5. CALTAN [Concomitant]
     Route: 048
     Dates: start: 20060414
  6. ROCALTROL [Concomitant]
     Route: 048
     Dates: start: 20060414

REACTIONS (4)
  - GENERAL PHYSICAL CONDITION ABNORMAL [None]
  - INFLUENZA [None]
  - PYREXIA [None]
  - WHITE BLOOD CELL COUNT DECREASED [None]
